FAERS Safety Report 13909241 (Version 1)
Quarter: 2017Q3

REPORT INFORMATION
  Report Type: Report from Study
  Country: None (occurrence: GB)
  Receive Date: 20170828
  Receipt Date: 20170828
  Transmission Date: 20171127
  Serious: Yes (Hospitalization)
  Sender: FDA-Public Use
  Company Number: GB-ABBVIE-17K-167-2082199-00

PATIENT
  Sex: Female
  Weight: 74 kg

DRUGS (2)
  1. DEPO-MEDRONE [Concomitant]
     Active Substance: METHYLPREDNISOLONE
     Indication: SERONEGATIVE ARTHRITIS
  2. HUMIRA [Suspect]
     Active Substance: ADALIMUMAB
     Indication: SERONEGATIVE ARTHRITIS
     Route: 058
     Dates: start: 20080226

REACTIONS (3)
  - Post procedural discomfort [Unknown]
  - Myocardial infarction [Unknown]
  - Seronegative arthritis [Unknown]
